FAERS Safety Report 16793491 (Version 2)
Quarter: 2019Q3

REPORT INFORMATION
  Report Type: Spontaneous
  Country: US (occurrence: US)
  Receive Date: 20190911
  Receipt Date: 20190920
  Transmission Date: 20191005
  Serious: No
  Sender: FDA-Public Use
  Company Number: US-009507513-1909USA002739

PATIENT
  Sex: Female

DRUGS (1)
  1. NEXPLANON [Suspect]
     Active Substance: ETONOGESTREL
     Dosage: ONE ROD IN THE LEFT ARM
     Route: 059
     Dates: start: 20190815

REACTIONS (5)
  - Implant site bruising [Unknown]
  - Discomfort [Unknown]
  - Device breakage [Not Recovered/Not Resolved]
  - Device kink [Not Recovered/Not Resolved]
  - Implant site paraesthesia [Unknown]

NARRATIVE: CASE EVENT DATE: 2019
